FAERS Safety Report 15778809 (Version 1)
Quarter: 2019Q1

REPORT INFORMATION
  Report Type: Spontaneous
  Country: CO (occurrence: CO)
  Receive Date: 20190101
  Receipt Date: 20190101
  Transmission Date: 20190417
  Serious: Yes (Other)
  Sender: FDA-Public Use
  Company Number: CO-AMGEN-COLSP2018144717

PATIENT
  Age: 67 Year
  Sex: Female

DRUGS (1)
  1. ENBREL [Suspect]
     Active Substance: ETANERCEPT
     Indication: RHEUMATOID ARTHRITIS
     Dosage: 50 MG, WEEKLY
     Route: 058
     Dates: start: 2017, end: 20180927

REACTIONS (4)
  - Bronchitis [Recovering/Resolving]
  - Urinary tract infection [Recovered/Resolved]
  - Kidney infection [Recovering/Resolving]
  - Dental caries [Recovered/Resolved]

NARRATIVE: CASE EVENT DATE: 201809
